FAERS Safety Report 18838002 (Version 1)
Quarter: 2021Q1

REPORT INFORMATION
  Report Type: Spontaneous
  Country: US (occurrence: US)
  Receive Date: 20210203
  Receipt Date: 20210203
  Transmission Date: 20210419
  Serious: No
  Sender: FDA-Public Use
  Company Number: US-ALLERGAN-2040960US

PATIENT
  Age: 22 Year
  Sex: Female

DRUGS (1)
  1. BOTOX [Suspect]
     Active Substance: ONABOTULINUMTOXINA
     Indication: MIGRAINE
     Dosage: UNK UNK, SINGLE
     Dates: start: 20200617, end: 20200617

REACTIONS (4)
  - Drug ineffective [Unknown]
  - Headache [Unknown]
  - Neck pain [Unknown]
  - Migraine [Unknown]

NARRATIVE: CASE EVENT DATE: 20200630
